FAERS Safety Report 5167967-8 (Version None)
Quarter: 2006Q4

REPORT INFORMATION
  Report Type: 
  Country: None (occurrence: None)
  Receive Date: 20061208
  Receipt Date: 20051201
  Transmission Date: 20070319
  Serious: No
  Sender: FDA-Public Use
  Company Number: US-GLAXOSMITHKLINE-A0584287A

PATIENT
  Age: 54 Year
  Sex: Female

DRUGS (16)
  1. AVANDAMET [Suspect]
     Dosage: 1TAB PER DAY
     Route: 048
     Dates: start: 20030924
  2. AVANDIA [Suspect]
     Route: 048
  3. METFORMIN [Suspect]
     Route: 048
  4. AMARYL [Concomitant]
  5. PRINIVIL [Concomitant]
  6. TOPROL-XL [Concomitant]
  7. ZOLOFT [Concomitant]
  8. SINGULAIR [Concomitant]
  9. NEURONTIN [Concomitant]
  10. SEROQUEL [Concomitant]
  11. ELAVIL [Concomitant]
  12. VYTORIN [Concomitant]
  13. GASTROENTERITIS TREATMENT [Concomitant]
     Route: 065
  14. DARVOCET [Concomitant]
  15. ATIVAN [Concomitant]
  16. ZANAFLEX [Concomitant]

REACTIONS (15)
  - BACK PAIN [None]
  - CHEST PAIN [None]
  - COLD SWEAT [None]
  - DRY THROAT [None]
  - DYSPHAGIA [None]
  - DYSPHONIA [None]
  - HYPERHIDROSIS [None]
  - INFLUENZA LIKE ILLNESS [None]
  - NASOPHARYNGEAL DISORDER [None]
  - OEDEMA PERIPHERAL [None]
  - ORAL DISCOMFORT [None]
  - PALPITATIONS [None]
  - SWOLLEN TONGUE [None]
  - THIRST [None]
  - THROAT IRRITATION [None]
